FAERS Safety Report 8493572-1 (Version None)
Quarter: 2012Q3

REPORT INFORMATION
  Report Type: 
  Country: None (occurrence: None)
  Receive Date: 20120706
  Receipt Date: 20120629
  Transmission Date: 20120928
  Serious: Yes (Other)
  Sender: FDA-Public Use
  Company Number: US-BAXTER-2012BAX010394

PATIENT
  Sex: Female
  Weight: 71 kg

DRUGS (3)
  1. DIANEAL [Suspect]
     Route: 033
     Dates: start: 20120105
  2. EXTRANEAL [Suspect]
     Route: 033
     Dates: start: 20120105
  3. DIANEAL [Suspect]
     Route: 033
     Dates: start: 20120105

REACTIONS (1)
  - PELVIC ABSCESS [None]
